FAERS Safety Report 9705950 (Version 2)
Quarter: 2013Q4

REPORT INFORMATION
  Report Type: Spontaneous
  Country: US (occurrence: US)
  Receive Date: 20131122
  Receipt Date: 20131127
  Transmission Date: 20140711
  Serious: Yes (Other)
  Sender: FDA-Public Use
  Company Number: US-GLAXOSMITHKLINE-A1038668A

PATIENT
  Age: 82 Year
  Sex: Female
  Weight: 46.8 kg

DRUGS (2)
  1. VENTOLIN [Suspect]
     Indication: PRODUCT USED FOR UNKNOWN INDICATION
     Route: 065
     Dates: start: 2013
  2. IGG [Suspect]
     Indication: IMMUNODEFICIENCY
     Route: 042

REACTIONS (11)
  - Adverse drug reaction [Recovered/Resolved]
  - Chills [Unknown]
  - Back pain [Unknown]
  - Dyspnoea [Unknown]
  - Burning sensation [Unknown]
  - Bronchitis [Unknown]
  - Chronic obstructive pulmonary disease [Unknown]
  - Cough [Unknown]
  - Chest pain [Unknown]
  - Fibrin D dimer increased [Unknown]
  - Inhalation therapy [Unknown]
